FAERS Safety Report 9285686 (Version 2)
Quarter: 2013Q3

REPORT INFORMATION
  Report Type: Spontaneous
  Country: US (occurrence: US)
  Receive Date: 20130513
  Receipt Date: 20130711
  Transmission Date: 20140515
  Serious: No
  Sender: FDA-Public Use
  Company Number: US-PFIZER INC-2013143364

PATIENT
  Age: 33 Year
  Sex: Female
  Weight: 88.66 kg

DRUGS (1)
  1. LIOTHYRONINE SODIUM [Suspect]
     Indication: HYPOTHYROIDISM
     Dosage: UNK
     Dates: start: 201304, end: 201304

REACTIONS (2)
  - Vomiting [Unknown]
  - Malaise [Unknown]
